FAERS Safety Report 6611697-X (Version None)
Quarter: 2010Q1

REPORT INFORMATION
  Report Type: 
  Country: None (occurrence: None)
  Receive Date: 20100226
  Receipt Date: 20100226
  Transmission Date: 20100710
  Serious: Yes (Other)
  Sender: FDA-Public Use
  Company Number: None

PATIENT
  Age: 4 Year
  Sex: Female
  Weight: 17.1 kg

DRUGS (2)
  1. ONCASPAR [Suspect]
     Indication: ACUTE LYMPHOCYTIC LEUKAEMIA
     Dosage: 862.5 IU IM -2500MG/M2- X 2 SHOTS IM
     Route: 030
     Dates: start: 20090623, end: 20090623
  2. PEG-ASP - LOT# 8113A [Concomitant]

REACTIONS (1)
  - URTICARIA [None]
